FAERS Safety Report 9063366 (Version 1)
Quarter: 2013Q1

REPORT INFORMATION
  Report Type: Spontaneous
  Country: TR (occurrence: TR)
  Receive Date: 20130213
  Receipt Date: 20130213
  Transmission Date: 20140127
  Serious: Yes (Life-Threatening, Hospitalization)
  Sender: FDA-Public Use
  Company Number: TR-SANOFI-AVENTIS-2013SA011033

PATIENT
  Age: 45 Year
  Sex: Male
  Weight: 82 kg

DRUGS (4)
  1. LANTUS SOLOSTAR [Suspect]
     Indication: TYPE 2 DIABETES MELLITUS
     Dosage: START DATE: 2 YEARS AGO
     Route: 058
     Dates: start: 2011
  2. LANTUS SOLOSTAR [Suspect]
     Indication: TYPE 2 DIABETES MELLITUS
     Route: 058
     Dates: start: 201302, end: 201302
  3. SOLOSTAR [Suspect]
     Indication: DEVICE THERAPY
     Dosage: START DATE: 2 YEARS AGO
     Dates: start: 2011
  4. SOLOSTAR [Suspect]
     Indication: DEVICE THERAPY
     Dates: start: 201302, end: 201302

REACTIONS (4)
  - Suicide attempt [Unknown]
  - Hypoglycaemia [Unknown]
  - Depressed level of consciousness [Not Recovered/Not Resolved]
  - Coma [Not Recovered/Not Resolved]
